FAERS Safety Report 22248832 (Version 1)
Quarter: 2023Q2

REPORT INFORMATION
  Report Type: Report from Study
  Country: US (occurrence: US)
  Receive Date: 20230425
  Receipt Date: 20230425
  Transmission Date: 20230721
  Serious: Yes (Hospitalization)
  Sender: FDA-Public Use
  Company Number: US-BIOVITRUM-2023US02478

PATIENT
  Age: 0 Year
  Sex: Male

DRUGS (9)
  1. SYNAGIS [Suspect]
     Active Substance: PALIVIZUMAB
     Indication: Interruption of aortic arch
     Dosage: 100 MG/ML?ONCE A MONTH
     Route: 030
     Dates: start: 20230224
  2. DIGOXIN [Concomitant]
     Active Substance: DIGOXIN
     Indication: Product used for unknown indication
  3. FERROUS SULFATE [Concomitant]
     Active Substance: FERROUS SULFATE
     Indication: Product used for unknown indication
  4. SILDENAFIL [Concomitant]
     Active Substance: SILDENAFIL
     Indication: Product used for unknown indication
  5. KP VITAMIN D [Concomitant]
     Indication: Product used for unknown indication
  6. NEXIUM [Concomitant]
     Active Substance: ESOMEPRAZOLE MAGNESIUM
     Indication: Product used for unknown indication
  7. SODIUM CHLORIDE [Concomitant]
     Active Substance: SODIUM CHLORIDE
     Indication: Product used for unknown indication
     Dosage: 0.9%
  8. CAROSPIR [Concomitant]
     Active Substance: SPIRONOLACTONE
     Indication: Product used for unknown indication
     Dosage: 25MG/5ML SUSPENSION
  9. FUROSEMIDE [Concomitant]
     Active Substance: FUROSEMIDE
     Indication: Product used for unknown indication

REACTIONS (2)
  - Off label use [Unknown]
  - Dyskinesia [Unknown]

NARRATIVE: CASE EVENT DATE: 20230224
